FAERS Safety Report 7474391-1 (Version None)
Quarter: 2011Q2

REPORT INFORMATION
  Report Type: 
  Country: None (occurrence: None)
  Receive Date: 20110511
  Receipt Date: 20110510
  Transmission Date: 20111010
  Serious: No
  Sender: FDA-Public Use
  Company Number: US-BAYER-2011-040130

PATIENT
  Age: 69 Year
  Sex: Female

DRUGS (5)
  1. LSG [Concomitant]
  2. CLINDAMYCIN [Concomitant]
  3. ACID REFLUX MEDICATION [Concomitant]
  4. AVELOX [Suspect]
     Indication: DIVERTICULITIS
     Dosage: 400 MG, QD
     Route: 048
     Dates: start: 20110504, end: 20110508
  5. BLOOD PRESSURE MEDICATION [Concomitant]

REACTIONS (3)
  - DIARRHOEA [None]
  - VOMITING [None]
  - HEADACHE [None]
